FAERS Safety Report 25233152 (Version 1)
Quarter: 2025Q2

REPORT INFORMATION
  Report Type: Spontaneous
  Country: DE (occurrence: DE)
  Receive Date: 20250424
  Receipt Date: 20250424
  Transmission Date: 20250717
  Serious: Yes (Other)
  Sender: BAYER HEALTHCARE PHARMACEUTICALS INC.
  Company Number: DE-BAYER-2025A053616

PATIENT
  Age: 70 Year
  Sex: Male

DRUGS (3)
  1. NUBEQA [Suspect]
     Active Substance: DAROLUTAMIDE
     Dosage: 600 MG, BID (1 IN 12 HOURS)
     Route: 048
     Dates: start: 20240820, end: 20250403
  2. ENANTONE LP [Concomitant]
     Active Substance: LEUPROLIDE ACETATE
     Dates: start: 20241001
  3. DOCETAXEL [Concomitant]
     Active Substance: DOCETAXEL
     Dates: start: 20241001

REACTIONS (2)
  - Gamma-glutamyltransferase increased [Unknown]
  - Product use issue [None]

NARRATIVE: CASE EVENT DATE: 20240820
